FAERS Safety Report 5354891-0 (Version None)
Quarter: 2007Q2

REPORT INFORMATION
  Report Type: 
  Country: None (occurrence: None)
  Receive Date: 20070611
  Receipt Date: 20070601
  Transmission Date: 20071010
  Serious: Yes (Hospitalization)
  Sender: FDA-Public Use
  Company Number: US016856

PATIENT
  Age: 17 Year
  Sex: Female
  Weight: 54.4316 kg

DRUGS (6)
  1. PROVIGIL [Suspect]
     Indication: ATTENTION DEFICIT/HYPERACTIVITY DISORDER
     Dosage: 300 MG QAM ORAL
     Route: 048
     Dates: start: 20051018, end: 20051202
  2. PROVIGIL [Suspect]
     Indication: ATTENTION DEFICIT/HYPERACTIVITY DISORDER
     Dosage: 100 MG QD ORAL
     Route: 048
     Dates: start: 20060113, end: 20060113
  3. LAMICTAL [Suspect]
     Indication: BIPOLAR DISORDER
     Dosage: 150 MG QD ORAL
     Route: 048
     Dates: start: 20051018
  4. LAMICTAL [Suspect]
     Indication: BIPOLAR DISORDER
     Dosage: 300 MG BID ORAL
     Route: 048
     Dates: start: 20051130, end: 20051203
  5. ABILIFY. MFR: OTUSAKA PHARMACEUTICAL CO., LTD. [Concomitant]
  6. SPIRONOLACTONE [Concomitant]

REACTIONS (8)
  - DYSURIA [None]
  - FACIAL PAIN [None]
  - HEADACHE [None]
  - RASH MACULO-PAPULAR [None]
  - RED BLOOD CELLS URINE POSITIVE [None]
  - STEVENS-JOHNSON SYNDROME [None]
  - STREPTOCOCCAL INFECTION [None]
  - WHITE BLOOD CELLS URINE POSITIVE [None]
